FAERS Safety Report 8366563-9 (Version None)
Quarter: 2012Q2

REPORT INFORMATION
  Report Type: 
  Country: None (occurrence: None)
  Receive Date: 20120517
  Receipt Date: 20120511
  Transmission Date: 20120825
  Serious: Yes (Other)
  Sender: FDA-Public Use
  Company Number: US-BAYER-2012-047317

PATIENT
  Age: 61 Year
  Sex: Male
  Weight: 109 kg

DRUGS (6)
  1. BALSALAZIDE DISODIUM [Concomitant]
     Indication: COLITIS ULCERATIVE
  2. TICAGRELOR [Concomitant]
  3. ASPIRIN [Suspect]
     Dosage: UNK
     Dates: start: 20120101
  4. REMICADE [Suspect]
     Indication: COLITIS ULCERATIVE
     Dosage: UNK
     Route: 042
     Dates: start: 20100901
  5. PRASUGREL [Suspect]
     Indication: ANTICOAGULANT THERAPY
     Dosage: UNK
     Route: 048
     Dates: start: 20120101, end: 20120101
  6. VICODIN [Concomitant]
     Indication: PAIN
     Dosage: 10 MG, TID
     Route: 048
     Dates: start: 20060101

REACTIONS (4)
  - CONTUSION [None]
  - ABNORMAL FAECES [None]
  - HAEMATOCHEZIA [None]
  - ADVERSE DRUG REACTION [None]
